FAERS Safety Report 14431294 (Version 2)
Quarter: 2018Q1

REPORT INFORMATION
  Report Type: Spontaneous
  Country: US (occurrence: US)
  Receive Date: 20180124
  Receipt Date: 20180130
  Transmission Date: 20180509
  Serious: No
  Sender: FDA-Public Use
  Company Number: US-PFIZER INC-2018026159

PATIENT
  Age: 12 Year
  Sex: Female
  Weight: 37.65 kg

DRUGS (4)
  1. MELATONIN [Concomitant]
     Active Substance: MELATONIN
     Indication: INSOMNIA
     Dosage: 0.5 DF DAILY, TAKEN AN HOUR BEFORE BEDTIME
     Dates: start: 201709
  2. QUILLIVANT XR [Suspect]
     Active Substance: METHYLPHENIDATE HYDROCHLORIDE
     Indication: ATTENTION DEFICIT/HYPERACTIVITY DISORDER
     Dosage: 6 ML, 1X/DAY [ONCE DAILY]
     Dates: start: 201709, end: 20180117
  3. QUILLIVANT XR [Suspect]
     Active Substance: METHYLPHENIDATE HYDROCHLORIDE
     Indication: SOCIAL ANXIETY DISORDER
  4. MELATONIN [Concomitant]
     Active Substance: MELATONIN
     Dosage: 2.5 MG, 1X/DAY [DAILY, TAKEN AN HOUR BEFORE BEDTIME]

REACTIONS (2)
  - Intentional product use issue [Recovered/Resolved with Sequelae]
  - Therapeutic response shortened [Recovered/Resolved]

NARRATIVE: CASE EVENT DATE: 20180117
